FAERS Safety Report 8289670-8 (Version None)
Quarter: 2012Q2

REPORT INFORMATION
  Report Type: 
  Country: None (occurrence: None)
  Receive Date: 20120417
  Receipt Date: 20120404
  Transmission Date: 20120825
  Serious: Yes (Other)
  Sender: FDA-Public Use
  Company Number: GB-TEVA-331517ISR

PATIENT
  Age: 14 Year
  Sex: Female
  Weight: 31.36 kg

DRUGS (2)
  1. TRIMETHOPRIM [Suspect]
     Indication: PROPHYLAXIS URINARY TRACT INFECTION
     Dates: end: 20120312
  2. LEVETIRACETAM [Concomitant]

REACTIONS (3)
  - CHEST PAIN [None]
  - WHEEZING [None]
  - DYSPNOEA [None]
